FAERS Safety Report 14997808 (Version 1)
Quarter: 2018Q2

REPORT INFORMATION
  Report Type: Spontaneous
  Country: US (occurrence: US)
  Receive Date: 20180611
  Receipt Date: 20180611
  Transmission Date: 20180711
  Serious: No
  Sender: FDA-Public Use
  Company Number: US-FOUNDATIONCONSUMERHC-2018-US-006404

PATIENT
  Age: 39 Year
  Sex: Female
  Weight: 85.28 kg

DRUGS (4)
  1. FLEXERIL [Suspect]
     Active Substance: CYCLOBENZAPRINE HYDROCHLORIDE
     Dosage: 10MG BEFORE BED
  2. DOXYCYCLINE. [Suspect]
     Active Substance: DOXYCYCLINE
  3. PLAN B ONE-STEP [Suspect]
     Active Substance: LEVONORGESTREL
     Indication: POST COITAL CONTRACEPTION
     Dosage: 1.5 MG
     Route: 048
     Dates: start: 20180329, end: 20180329
  4. MELOXICAM. [Suspect]
     Active Substance: MELOXICAM
     Dosage: 25MG ONCE DAILY FOR 30 DAYS

REACTIONS (1)
  - Menstruation delayed [Not Recovered/Not Resolved]

NARRATIVE: CASE EVENT DATE: 20180414
